FAERS Safety Report 6169384-0 (Version None)
Quarter: 2009Q2

REPORT INFORMATION
  Report Type: 
  Country: None (occurrence: None)
  Receive Date: 20090424
  Receipt Date: 20090409
  Transmission Date: 20091009
  Serious: Yes (Hospitalization)
  Sender: FDA-Public Use
  Company Number: 2009S1006670

PATIENT
  Age: 74 Year
  Sex: Male
  Weight: 62 kg

DRUGS (6)
  1. PREDNISOLONE [Suspect]
     Indication: RHEUMATOID ARTHRITIS
     Dosage: 7.5 MG; ORAL
     Route: 048
     Dates: start: 20070101
  2. METHOTREXATE [Suspect]
     Indication: RHEUMATOID ARTHRITIS
     Dosage: 15 MG; ORAL
     Route: 048
     Dates: start: 20070101
  3. SALOFALK /00000301/ [Concomitant]
  4. FOLSAN [Concomitant]
  5. FERROSANOL [Concomitant]
  6. BENALAPRIL [Concomitant]

REACTIONS (2)
  - DRUG INTERACTION [None]
  - ULCER HAEMORRHAGE [None]
